FAERS Safety Report 11297385 (Version 1)
Quarter: 2015Q3

REPORT INFORMATION
  Report Type: Spontaneous
  Country: US (occurrence: US)
  Receive Date: 20150722
  Receipt Date: 20150722
  Transmission Date: 20151125
  Serious: No
  Sender: FDA-Public Use
  Company Number: US-ELI_LILLY_AND_COMPANY-US201004006202

PATIENT
  Age: 59 Year
  Sex: Female
  Weight: 99.32 kg

DRUGS (1)
  1. EFFIENT [Suspect]
     Active Substance: PRASUGREL HYDROCHLORIDE
     Dosage: 10 MG, UNK

REACTIONS (3)
  - Fatigue [Unknown]
  - Activities of daily living impaired [Unknown]
  - Dyspnoea [Unknown]
